FAERS Safety Report 23245689 (Version 4)
Quarter: 2024Q3

REPORT INFORMATION
  Report Type: Spontaneous
  Country: US (occurrence: US)
  Receive Date: 20231130
  Receipt Date: 20240917
  Transmission Date: 20241016
  Serious: Yes (Disabling, Other)
  Sender: CHATTEM
  Company Number: US-OPELLA-2023OHG015572

PATIENT
  Age: 30 Year
  Sex: Male

DRUGS (19)
  1. TALC [Suspect]
     Active Substance: TALC
     Indication: Product used for unknown indication
     Route: 065
  2. APLENZIN [Concomitant]
     Active Substance: BUPROPION HYDROBROMIDE
     Indication: Product used for unknown indication
     Dosage: TAKE 348 MG BY MOUTH ONCE DAILY IN THE EVENING. - ORAL
     Route: 048
     Dates: start: 20221121
  3. BUSPIRONE [Concomitant]
     Active Substance: BUSPIRONE HYDROCHLORIDE
     Indication: Product used for unknown indication
     Dosage: TAKE 20 MG BY MOUTH TWO TIMES DAILY. - ORAL
     Route: 048
     Dates: start: 20230713
  4. Calcium OR [Concomitant]
     Indication: Product used for unknown indication
     Dosage: TAKE 500 MG BY MOUTH ONCE DAILY IN THE EVENING. - ORAL
     Route: 048
  5. Calcium OR [Concomitant]
     Dosage: TAKE 500 MG BY MOUTH ONCE DAILY IN THE EVENING. - ORAL
     Route: 048
  6. CHOLECALCIFEROL [Concomitant]
     Active Substance: CHOLECALCIFEROL
     Indication: Product used for unknown indication
     Dosage: TAKE 2,000 UNITS BY MOUTH ONCE DAILY. - ORAL
     Route: 048
  7. CORLANOR [Concomitant]
     Active Substance: IVABRADINE HYDROCHLORIDE
     Indication: Product used for unknown indication
     Dosage: TAKE 5 MG BY MOUTH TWO TIMES DAILY. PLEASE STOP DILTIAZEM 24 HOURS PRIOR TO STARTING. - ORAL
     Route: 048
     Dates: start: 20230331
  8. DEXAMETHASONE [Concomitant]
     Active Substance: DEXAMETHASONE
     Indication: Product used for unknown indication
     Dosage: TABLET
     Route: 048
     Dates: start: 20230825
  9. DEXAMETHASONE [Concomitant]
     Active Substance: DEXAMETHASONE
     Dosage: FOR 21-DAY CYCLE, TAKE 1 TABLET BY MOUTH IN THE MORNING, 1 TABLET IN THE EVENING THE DAY BEFORE?TREA
     Route: 048
     Dates: start: 20230915
  10. ESTRADIOL [Concomitant]
     Active Substance: ESTRADIOL
     Indication: Product used for unknown indication
     Dosage: TAKE 1.5 TABLETS BY MOUTH ONCE DAILY IN THE MORNING AND 1 TABLET ONCE DAILY IN THE EVENING. - ORAL
     Route: 048
     Dates: start: 20230526
  11. FOLIC ACID [Concomitant]
     Active Substance: FOLIC ACID
     Indication: Product used for unknown indication
     Dosage: TAKE 1 TABLET BY MOUTH ONCE DAILY. START 1 WEEK PRIOR TO TREATMENT AND CONTINUE UNTIL 21 DAYS?AFTER
     Route: 048
     Dates: start: 20230915
  12. LEVOTHYROXINE [Concomitant]
     Active Substance: LEVOTHYROXINE\LEVOTHYROXINE SODIUM
     Indication: Product used for unknown indication
     Dosage: TAKE 2 TABLETS BY MOUTH DAILY BEFORE BREAKFAST. - ORAL
     Route: 048
     Dates: start: 20230526
  13. PROCHLORPERAZINE [Concomitant]
     Active Substance: PROCHLORPERAZINE
     Indication: Product used for unknown indication
     Dosage: TABLET
     Route: 048
     Dates: start: 20230826
  14. PROCHLORPERAZINE [Concomitant]
     Active Substance: PROCHLORPERAZINE
     Dosage: TAKE 0.5-1 TABLETS BY MOUTH EVERY SIX HOURS AS NEEDED FOR NAUSEA/VOMITING. MAX DOSE: 40 MG/DAY -?ORA
     Route: 048
     Dates: start: 20230915
  15. QUETIAPINE FUMARATE [Concomitant]
     Active Substance: QUETIAPINE FUMARATE
     Indication: Product used for unknown indication
     Dosage: TAKE 75 MG BY MOUTH ONCE DAILY AT BEDTIME AS NEEDED (SLEEP). - ORAL
     Route: 048
     Dates: start: 20231109
  16. MULTIVITAMIN ORAL [Concomitant]
     Indication: Product used for unknown indication
     Dosage: TAKE 1 TABLET BY MOUTH ONCE DAILY. - ORAL
     Route: 048
  17. ONDANSETRON [Concomitant]
     Active Substance: ONDANSETRON
     Indication: Nausea
     Dosage: DISSOLVE 1 TABLET ON TONGUE AND SWALLOW EVERY EIGHT HOURS AS NEEDED FOR NAUSEA/VOMITING.?INDICATIONS
     Route: 048
     Dates: start: 20230923
  18. ONDANSETRON [Concomitant]
     Active Substance: ONDANSETRON
     Indication: Vomiting
  19. PROGESTERONE [Concomitant]
     Active Substance: PROGESTERONE
     Indication: Product used for unknown indication
     Dosage: TAKE ONE CAPSULE BY MOUTH DAILY
     Route: 048

REACTIONS (8)
  - Epithelioid mesothelioma [Unknown]
  - Disability [Unknown]
  - Pineal parenchymal neoplasm malignant [Unknown]
  - Exposure to chemical pollution [Unknown]
  - Pain [Unknown]
  - Anxiety [Unknown]
  - Discomfort [Unknown]
  - Fear [Unknown]

NARRATIVE: CASE EVENT DATE: 20230815
